FAERS Safety Report 16394136 (Version 2)
Quarter: 2019Q2

REPORT INFORMATION
  Report Type: Spontaneous
  Country: US (occurrence: US)
  Receive Date: 20190605
  Receipt Date: 20190612
  Transmission Date: 20190711
  Serious: Yes (Hospitalization)
  Sender: FDA-Public Use
  Company Number: US-PFIZER INC-2019232858

PATIENT

DRUGS (1)
  1. ROPIVACAINE HYDROCHLORIDE. [Suspect]
     Active Substance: ROPIVACAINE HYDROCHLORIDE
     Indication: NERVE BLOCK
     Dosage: UNK UNK, SINGLE [18-20 ML]

REACTIONS (6)
  - Hypoaesthesia [Unknown]
  - Movement disorder [Unknown]
  - Therapeutic product effect prolonged [Unknown]
  - Suspected product quality issue [Unknown]
  - Incorrect dose administered [Unknown]
  - Arthropathy [Recovered/Resolved]
